FAERS Safety Report 7910661-8 (Version None)
Quarter: 2011Q4

REPORT INFORMATION
  Report Type: 
  Country: None (occurrence: None)
  Receive Date: 20111111
  Receipt Date: 20111104
  Transmission Date: 20120403
  Serious: Yes (Other)
  Sender: FDA-Public Use
  Company Number: US-ROCHE-GNE314028

PATIENT
  Sex: Female
  Weight: 111.23 kg

DRUGS (3)
  1. XOLAIR [Suspect]
     Indication: ASTHMA
     Dosage: 300 MG, Q2W
     Route: 058
     Dates: start: 20070101, end: 20110214
  2. TRACLEER [Concomitant]
     Indication: PULMONARY HYPERTENSION
  3. XOLAIR [Suspect]
     Indication: HYPERSENSITIVITY

REACTIONS (5)
  - WHEEZING [None]
  - DYSPNOEA [None]
  - URTICARIA [None]
  - OSTEONECROSIS [None]
  - PRURITUS [None]
